FAERS Safety Report 11917387 (Version 2)
Quarter: 2016Q1

REPORT INFORMATION
  Report Type: Spontaneous
  Country: US (occurrence: JP)
  Receive Date: 20160114
  Receipt Date: 20160125
  Transmission Date: 20160526
  Serious: No
  Sender: FDA-Public Use
  Company Number: US-AKRON, INC.-1046498

PATIENT
  Age: 53 Year
  Sex: Female

DRUGS (4)
  1. LINOLOSAL [Concomitant]
     Dates: start: 20151011, end: 20151224
  2. HYALEIN [Concomitant]
     Active Substance: HYALURONATE SODIUM
     Dates: start: 20151109
  3. SANCOBA [Concomitant]
     Active Substance: CYANOCOBALAMIN
     Dates: start: 20151221
  4. COSOPT [Suspect]
     Active Substance: DORZOLAMIDE HYDROCHLORIDE\TIMOLOL MALEATE
     Indication: GLAUCOMA
     Route: 031
     Dates: start: 20151013, end: 20151224

REACTIONS (1)
  - Eyelid ptosis [Unknown]

NARRATIVE: CASE EVENT DATE: 20151116
